FAERS Safety Report 12398204 (Version 1)
Quarter: 2016Q2

REPORT INFORMATION
  Report Type: Spontaneous
  Country: US (occurrence: None)
  Receive Date: 20160523
  Receipt Date: 20160523
  Transmission Date: 20160815
  Serious: Yes (Hospitalization)
  Sender: FDA-Public Use
  Company Number: None

PATIENT
  Age: 73 Year
  Sex: Male
  Weight: 76.38 kg

DRUGS (1)
  1. GEMCITABINE HYDROCHLORIDE. [Suspect]
     Active Substance: GEMCITABINE HYDROCHLORIDE
     Dates: end: 20160427

REACTIONS (7)
  - Dyspnoea [None]
  - Dyspnoea exertional [None]
  - Extranodal marginal zone B-cell lymphoma (MALT type) [None]
  - Pleural effusion [None]
  - Cardiac failure [None]
  - Chest pain [None]
  - Ejection fraction decreased [None]

NARRATIVE: CASE EVENT DATE: 20160504
